FAERS Safety Report 7689465-X (Version None)
Quarter: 2011Q3

REPORT INFORMATION
  Report Type: 
  Country: None (occurrence: None)
  Receive Date: 20110811
  Receipt Date: 20110729
  Transmission Date: 20111222
  Serious: Yes (Death, Hospitalization)
  Sender: FDA-Public Use
  Company Number: UTC-007617

PATIENT
  Age: 53 Year
  Sex: Female
  Weight: 52.27 kg

DRUGS (6)
  1. NEXIUM [Concomitant]
  2. POTASSIUM SUPPLEMENT (POTASSIUM) [Concomitant]
  3. REMODULIN [Suspect]
     Indication: PULMONARY ARTERIAL HYPERTENSION
     Dosage: 118.08 UG/KG (0.082 UG/KG, 1 IN 1 MIN) , INTRAVENOUS
     Route: 042
     Dates: start: 20060510
  4. ZOFRAN [Concomitant]
  5. DIURETICS (DIURETICS) [Concomitant]
  6. REVATIO (SILDENAFILCITRATE0 [Concomitant]

REACTIONS (8)
  - SUBARACHNOID HAEMORRHAGE [None]
  - GASTROINTESTINAL MUCOSAL DISORDER [None]
  - RENAL TUBULAR NECROSIS [None]
  - MIXED CONNECTIVE TISSUE DISEASE [None]
  - RIGHT VENTRICULAR FAILURE [None]
  - SUBDURAL HAEMATOMA [None]
  - SMALL INTESTINAL HAEMORRHAGE [None]
  - THROMBOCYTOPENIA [None]
